FAERS Safety Report 8765608 (Version 2)
Quarter: 2013Q1

REPORT INFORMATION
  Report Type: Spontaneous
  Country: US (occurrence: US)
  Receive Date: 20120902
  Receipt Date: 20130108
  Transmission Date: 20140127
  Serious: No
  Sender: FDA-Public Use
  Company Number: US-009507513-1208USA008659

PATIENT
  Sex: Female
  Weight: 61.22 kg

DRUGS (1)
  1. IMPLANON [Suspect]
     Indication: CONTRACEPTION
     Dosage: 1 DF, UNK
     Dates: start: 20120809

REACTIONS (3)
  - Injection site discomfort [Unknown]
  - Injection site erythema [Unknown]
  - Injection site swelling [Unknown]
